FAERS Safety Report 7511987-2 (Version None)
Quarter: 2011Q2

REPORT INFORMATION
  Report Type: 
  Country: None (occurrence: None)
  Receive Date: 20110531
  Receipt Date: 20110523
  Transmission Date: 20111010
  Serious: Yes (Hospitalization, Other)
  Sender: FDA-Public Use
  Company Number: PHHY2010BR87973

PATIENT
  Sex: Female
  Weight: 53 kg

DRUGS (1)
  1. FORMOTEROL FUMARATE [Suspect]
     Indication: EMPHYSEMA
     Dosage: 1 DF, QD

REACTIONS (4)
  - FRACTURE [None]
  - LIMB DISCOMFORT [None]
  - TENDON RUPTURE [None]
  - HYPERTENSION [None]
